FAERS Safety Report 13292809 (Version 1)
Quarter: 2017Q1

REPORT INFORMATION
  Report Type: Spontaneous
  Country: US (occurrence: US)
  Receive Date: 20170303
  Receipt Date: 20170303
  Transmission Date: 20170428
  Serious: No
  Sender: FDA-Public Use
  Company Number: US-PFIZER INC-2017089933

PATIENT
  Sex: Female

DRUGS (2)
  1. GUAIFENESIN. [Interacting]
     Active Substance: GUAIFENESIN
     Dosage: UNK
  2. NARDIL [Suspect]
     Active Substance: PHENELZINE SULFATE
     Dosage: UNK

REACTIONS (1)
  - Drug interaction [Unknown]
